FAERS Safety Report 5068503-7 (Version None)
Quarter: 2006Q3

REPORT INFORMATION
  Report Type: 
  Country: None (occurrence: None)
  Receive Date: 20060802
  Receipt Date: 20051027
  Transmission Date: 20061208
  Serious: Yes (Hospitalization)
  Sender: FDA-Public Use
  Company Number: US-BRISTOL-MYERS SQUIBB COMPANY-13159736

PATIENT
  Age: 24 Year
  Sex: Male

DRUGS (3)
  1. COUMADIN [Suspect]
     Indication: PROPHYLAXIS
  2. LOVENOX [Suspect]
     Route: 058
     Dates: start: 20051008
  3. ATENOLOL [Concomitant]

REACTIONS (1)
  - POST PROCEDURAL HAEMORRHAGE [None]
